FAERS Safety Report 8614025-3 (Version None)
Quarter: 2012Q3

REPORT INFORMATION
  Report Type: 
  Country: None (occurrence: None)
  Receive Date: 20120810
  Receipt Date: 20120810
  Transmission Date: 20120928
  Serious: Yes (Disabling)
  Sender: FDA-Public Use
  Company Number: None

PATIENT
  Sex: Male
  Weight: 95.2554 kg

DRUGS (1)
  1. LOSARTAN POTASSIUM [Suspect]

REACTIONS (2)
  - STAPHYLOCOCCAL SKIN INFECTION [None]
  - DRUG INEFFECTIVE [None]
